FAERS Safety Report 4639185-0 (Version None)
Quarter: 2005Q2

REPORT INFORMATION
  Report Type: 
  Country: None (occurrence: None)
  Receive Date: 20050419
  Receipt Date: 20050408
  Transmission Date: 20051028
  Serious: Yes (Hospitalization)
  Sender: FDA-Public Use
  Company Number: US-AMGEN-US124458

PATIENT
  Sex: Male
  Weight: 94.4 kg

DRUGS (8)
  1. EPOGEN [Suspect]
     Indication: DIALYSIS
     Route: 058
     Dates: start: 20020101
  2. LEXAPRO [Concomitant]
  3. ACCUPRIL [Concomitant]
  4. IMDUR [Concomitant]
  5. TOPROL-XL [Concomitant]
  6. TRENTAL [Concomitant]
  7. NPH INSULIN [Concomitant]
  8. NITRO [Concomitant]

REACTIONS (4)
  - CHEST PAIN [None]
  - DECUBITUS ULCER [None]
  - GASTRIC ULCER HAEMORRHAGE [None]
  - THERAPEUTIC RESPONSE DECREASED [None]
